FAERS Safety Report 23926654 (Version 1)
Quarter: 2024Q2

REPORT INFORMATION
  Report Type: Spontaneous
  Country: US (occurrence: US)
  Receive Date: 20240531
  Receipt Date: 20240531
  Transmission Date: 20240716
  Serious: No
  Sender: FDA-Public Use
  Company Number: US-RADIUS HEALTH, INC.-2023US003385

PATIENT
  Sex: Female
  Weight: 56.689 kg

DRUGS (4)
  1. TYMLOS [Suspect]
     Active Substance: ABALOPARATIDE
     Indication: Senile osteoporosis
     Dosage: 80 MICROGRAM, QD
     Route: 058
     Dates: start: 20230619
  2. TYMLOS [Suspect]
     Active Substance: ABALOPARATIDE
     Dosage: 70 MICROGRAM, QD
     Route: 058
  3. VITAMIN D NOS [Concomitant]
     Active Substance: CHOLECALCIFEROL\ERGOCALCIFEROL
     Indication: Product used for unknown indication
  4. CALCIUM [Concomitant]
     Active Substance: CALCIUM
     Indication: Product used for unknown indication

REACTIONS (18)
  - Sensory disturbance [Not Recovered/Not Resolved]
  - Taste disorder [Not Recovered/Not Resolved]
  - Brain fog [Unknown]
  - Contusion [Recovering/Resolving]
  - Visual impairment [Recovering/Resolving]
  - Abdominal discomfort [Unknown]
  - Feeling abnormal [Unknown]
  - Pollakiuria [Unknown]
  - Fat tissue increased [Unknown]
  - Headache [Unknown]
  - Heart rate increased [Unknown]
  - Nausea [Unknown]
  - Pain [Recovering/Resolving]
  - Rash [Unknown]
  - Wrong technique in product usage process [Unknown]
  - Product storage error [Unknown]
  - Intentional product misuse [Unknown]
  - Product quality issue [Unknown]
